FAERS Safety Report 6012184-2 (Version None)
Quarter: 2008Q4

REPORT INFORMATION
  Report Type: 
  Country: None (occurrence: None)
  Receive Date: 20081218
  Receipt Date: 20081211
  Transmission Date: 20090506
  Serious: Yes (Hospitalization)
  Sender: FDA-Public Use
  Company Number: CN-ASTRAZENECA-2008AP09197

PATIENT
  Age: 70 Year

DRUGS (3)
  1. OMEPRAZOLE [Suspect]
     Indication: GASTROINTESTINAL HAEMORRHAGE
     Route: 048
     Dates: start: 20081120, end: 20081124
  2. YUNNAN WHITE [Concomitant]
     Indication: HAEMOSTASIS
     Route: 048
     Dates: start: 20080101
  3. ALUMINIUM CARBONIC ACID MAGNESIUM [Concomitant]
     Indication: GASTROINTESTINAL HAEMORRHAGE
     Route: 048
     Dates: start: 20081101

REACTIONS (3)
  - DYSKINESIA [None]
  - SOLILOQUY [None]
  - SPEECH DISORDER [None]
